FAERS Safety Report 5603013-7 (Version None)
Quarter: 2008Q1

REPORT INFORMATION
  Report Type: 
  Country: None (occurrence: None)
  Receive Date: 20080125
  Receipt Date: 20080117
  Transmission Date: 20080703
  Serious: Yes (Other)
  Sender: FDA-Public Use
  Company Number: US-MERCK-0801USA03787

PATIENT
  Sex: Male

DRUGS (1)
  1. VYTORIN [Suspect]
     Route: 048

REACTIONS (1)
  - CEREBROVASCULAR ACCIDENT [None]
